FAERS Safety Report 16238566 (Version 1)
Quarter: 2019Q2

REPORT INFORMATION
  Report Type: Spontaneous
  Country: US (occurrence: US)
  Receive Date: 20190424
  Receipt Date: 20190424
  Transmission Date: 20190711
  Serious: No
  Sender: FDA-Public Use
  Company Number: None

PATIENT
  Age: 55 Year
  Sex: Female
  Weight: 78.75 kg

DRUGS (4)
  1. ZOLPIDEM [Concomitant]
     Active Substance: ZOLPIDEM\ZOLPIDEM TARTRATE
  2. VITAMIN D [Concomitant]
     Active Substance: VITAMIN D NOS
  3. GLUCOSAMINE [Concomitant]
     Active Substance: GLUCOSAMINE
  4. MIDODRINE [Suspect]
     Active Substance: MIDODRINE
     Indication: ORTHOSTATIC HYPOTENSION
     Dosage: ?          QUANTITY:90 TABLET(S);?
     Route: 048
     Dates: start: 20190416, end: 20190416

REACTIONS (11)
  - Pruritus generalised [None]
  - Headache [None]
  - Cognitive disorder [None]
  - Dizziness [None]
  - Nausea [None]
  - Myalgia [None]
  - Orthostatic hypotension [None]
  - Insomnia [None]
  - Neuralgia [None]
  - Dysstasia [None]
  - Rash generalised [None]

NARRATIVE: CASE EVENT DATE: 20190416
